FAERS Safety Report 8825506 (Version 1)
Quarter: 2012Q4

REPORT INFORMATION
  Report Type: 
  Country: CN (occurrence: CN)
  Receive Date: 20121004
  Receipt Date: 20121004
  Transmission Date: 20130627
  Serious: Yes (Hospitalization)
  Sender: FDA-Public Use
  Company Number: CN-JNJFOC-20121001749

PATIENT
  Sex: Male

DRUGS (1)
  1. TYLENOL [Suspect]
     Indication: UPPER RESPIRATORY TRACT INFECTION
     Dosage: 1ml, 4 times a day
     Route: 048
     Dates: start: 20100312, end: 20100312

REACTIONS (1)
  - Rash [Recovering/Resolving]
